APPROVED DRUG PRODUCT: FLUOCINOLONE ACETONIDE
Active Ingredient: FLUOCINOLONE ACETONIDE
Strength: 0.01%
Dosage Form/Route: OIL;TOPICAL
Application: A212761 | Product #001 | TE Code: AT
Applicant: QUAGEN PHARMACEUTICALS LLC
Approved: Apr 2, 2021 | RLD: No | RS: No | Type: RX